FAERS Safety Report 20775225 (Version 2)
Quarter: 2022Q2

REPORT INFORMATION
  Report Type: Spontaneous
  Country: US (occurrence: US)
  Receive Date: 20220502
  Receipt Date: 20220504
  Transmission Date: 20220721
  Serious: No
  Sender: FDA-Public Use
  Company Number: US-PFIZER INC-2018368984

PATIENT
  Age: 63 Year
  Sex: Male
  Weight: 72.57 kg

DRUGS (4)
  1. LYRICA [Suspect]
     Active Substance: PREGABALIN
     Indication: Dystonia
     Dosage: 300 MG, 3X/DAY
     Route: 048
  2. LYRICA [Suspect]
     Active Substance: PREGABALIN
     Dosage: 300 MG, 2X/DAY (BID (TWICE A DAY))
     Route: 048
  3. LYRICA [Suspect]
     Active Substance: PREGABALIN
     Dosage: 300 MG, 1X/DAY (1 CAPSUL BID)
     Route: 048
     Dates: start: 2010
  4. ORPHENADRINE [Concomitant]
     Active Substance: ORPHENADRINE
     Indication: Dystonia
     Dosage: 100 MG

REACTIONS (6)
  - Drug effective for unapproved indication [Unknown]
  - Off label use [Unknown]
  - Prescribed overdose [Unknown]
  - Daydreaming [Unknown]
  - Blood pressure decreased [Unknown]
  - Panic disorder [Unknown]

NARRATIVE: CASE EVENT DATE: 20210614
